FAERS Safety Report 10365898 (Version 2)
Quarter: 2014Q3

REPORT INFORMATION
  Report Type: Spontaneous
  Country: JP (occurrence: JP)
  Receive Date: 20140806
  Receipt Date: 20140818
  Transmission Date: 20150326
  Serious: Yes (Other)
  Sender: FDA-Public Use
  Company Number: JP-TEVA-498951ISR

PATIENT
  Age: 61 Year
  Sex: Male

DRUGS (9)
  1. XARELTO TABLETS 15MG [Concomitant]
     Route: 048
  2. URSO TABLETS [Concomitant]
     Route: 048
  3. TRAZENTA TABLETS 5MG [Concomitant]
     Route: 048
  4. GLYCYRON TABLETS [Concomitant]
     Route: 048
  5. BISOPROLOL FUMARATE. [Concomitant]
     Active Substance: BISOPROLOL FUMARATE
     Route: 048
  6. (TS)FUROSEMIDE TABLET 20 ^TAIYO^,TAB,20MG [Suspect]
     Active Substance: FUROSEMIDE
     Indication: PRODUCT USED FOR UNKNOWN INDICATION
     Route: 048
     Dates: start: 201401
  7. FEXOFENADINE HYDROCHLORIDE TABLETS [Concomitant]
     Active Substance: FEXOFENADINE HYDROCHLORIDE
     Route: 048
  8. PIOGLITAZONE TABLETS [Concomitant]
     Route: 048
  9. SPIRONOLACTONE TABLETS [Concomitant]
     Active Substance: SPIRONOLACTONE
     Route: 048

REACTIONS (1)
  - Dermatitis bullous [Unknown]

NARRATIVE: CASE EVENT DATE: 20140728
